FAERS Safety Report 19929324 (Version 2)
Quarter: 2021Q4

REPORT INFORMATION
  Report Type: Report from Study
  Country: US (occurrence: US)
  Receive Date: 20211007
  Receipt Date: 20211018
  Transmission Date: 20220303
  Serious: Yes (Other)
  Sender: FDA-Public Use
  Company Number: US-KOREA IPSEN PHARMA-2021-23915

PATIENT
  Age: 69 Year
  Sex: Male

DRUGS (2)
  1. SOMATULINE DEPOT [Suspect]
     Active Substance: LANREOTIDE ACETATE
     Indication: Malignant neoplasm of thymus
     Dosage: 120 MG/0.5 ML
     Route: 058
     Dates: start: 202003, end: 20210917
  2. SOMATULINE DEPOT [Suspect]
     Active Substance: LANREOTIDE ACETATE
     Indication: Off label use

REACTIONS (7)
  - Prostate cancer [Recovering/Resolving]
  - Injection site pain [Recovering/Resolving]
  - Heart rate decreased [Recovering/Resolving]
  - Glucose tolerance impaired [Recovering/Resolving]
  - Thyroid disorder [Recovering/Resolving]
  - Weight decreased [Unknown]
  - Off label use [Unknown]

NARRATIVE: CASE EVENT DATE: 20200301
